FAERS Safety Report 5533491-3 (Version None)
Quarter: 2007Q4

REPORT INFORMATION
  Report Type: 
  Country: None (occurrence: None)
  Receive Date: 20071204
  Receipt Date: 20071122
  Transmission Date: 20080405
  Serious: Yes (Hospitalization, Other)
  Sender: FDA-Public Use
  Company Number: US-PFIZER INC-2007097995

PATIENT
  Age: 20 Year
  Sex: Male
  Weight: 66.7 kg

DRUGS (6)
  1. SUTENT [Suspect]
     Indication: NEOPLASM
     Route: 048
  2. OXYCODONE HCL [Suspect]
  3. OXYCONTIN [Suspect]
  4. MIRALAX [Concomitant]
  5. NEUTRA-PHOS [Concomitant]
  6. NEXIUM [Concomitant]

REACTIONS (5)
  - ABDOMINAL DISTENSION [None]
  - FLATULENCE [None]
  - LEFT VENTRICULAR DYSFUNCTION [None]
  - MYOCARDIAL ISCHAEMIA [None]
  - WEIGHT DECREASED [None]
